FAERS Safety Report 24212633 (Version 1)
Quarter: 2024Q3

REPORT INFORMATION
  Report Type: Spontaneous
  Country: US (occurrence: US)
  Receive Date: 20240815
  Receipt Date: 20240815
  Transmission Date: 20241016
  Serious: No
  Sender: HIKMA
  Company Number: HIKM2405575

PATIENT

DRUGS (3)
  1. REGADENOSON [Suspect]
     Active Substance: REGADENOSON
     Indication: Hypertension
     Dosage: 5 MILLILITER
     Route: 065
  2. REGADENOSON [Suspect]
     Active Substance: REGADENOSON
     Indication: Dyspnoea
  3. CARVEDILOL [Concomitant]
     Active Substance: CARVEDILOL
     Indication: Product used for unknown indication
     Dosage: UNKNOWN
     Route: 065

REACTIONS (3)
  - Abdominal discomfort [Unknown]
  - Nausea [Unknown]
  - Abdominal pain [Unknown]
